FAERS Safety Report 12589864 (Version 3)
Quarter: 2016Q3

REPORT INFORMATION
  Report Type: Spontaneous
  Country: CN (occurrence: CN)
  Receive Date: 20160725
  Receipt Date: 20160801
  Transmission Date: 20161109
  Serious: Yes (Hospitalization, Other)
  Sender: FDA-Public Use
  Company Number: CN-ABBVIE-16P-035-1675095-00

PATIENT
  Age: 37 Year
  Sex: Male
  Weight: 75 kg

DRUGS (4)
  1. DEPAKINE CHRONO ER [Suspect]
     Active Substance: VALPROIC ACID
     Route: 048
     Dates: start: 20140704, end: 20140907
  2. DEPAKINE CHRONO ER [Suspect]
     Active Substance: VALPROIC ACID
     Indication: EPILEPSY
     Route: 048
     Dates: start: 2009, end: 201403
  3. DEPAKINE CHRONO ER [Suspect]
     Active Substance: VALPROIC ACID
     Route: 048
     Dates: start: 201403, end: 20140704
  4. DEPAKINE CHRONO ER [Suspect]
     Active Substance: VALPROIC ACID
     Route: 048
     Dates: start: 20140907, end: 20140914

REACTIONS (8)
  - Nausea [Recovered/Resolved]
  - Oliguria [Recovered/Resolved]
  - Oedema [Recovered/Resolved]
  - Inappropriate antidiuretic hormone secretion [Recovered/Resolved]
  - Partial seizures [Recovered/Resolved]
  - Hyponatraemia [Recovered/Resolved]
  - Decreased appetite [Recovered/Resolved]
  - Vomiting [Recovered/Resolved]
